FAERS Safety Report 9460730 (Version 1)
Quarter: 2013Q3

REPORT INFORMATION
  Report Type: Spontaneous
  Country: US (occurrence: US)
  Receive Date: 20130815
  Receipt Date: 20130815
  Transmission Date: 20140515
  Serious: Yes (Other)
  Sender: FDA-Public Use
  Company Number: US-TEVA-426324USA

PATIENT
  Age: 37 Year
  Sex: Female

DRUGS (2)
  1. NAPROXEN [Suspect]
     Indication: MIGRAINE
     Dosage: 440MG
     Route: 065
  2. SUMATRIPTAN [Interacting]
     Indication: MIGRAINE
     Dosage: 4X50MG TABLETS 3D PRIOR, 4 TABLETS 1D PRIOR TO PRESENTATION
     Route: 065

REACTIONS (2)
  - Colitis ischaemic [Recovering/Resolving]
  - Drug interaction [Recovering/Resolving]
